FAERS Safety Report 5894686-2 (Version None)
Quarter: 2008Q3

REPORT INFORMATION
  Report Type: 
  Country: None (occurrence: None)
  Receive Date: 20080924
  Receipt Date: 20080916
  Transmission Date: 20090109
  Serious: Yes (Disabling)
  Sender: FDA-Public Use
  Company Number: GB-WYE-G02080508

PATIENT
  Sex: Female

DRUGS (5)
  1. EFFEXOR XR [Suspect]
     Indication: DEPRESSION
     Route: 048
     Dates: start: 20080129, end: 20080508
  2. EFFEXOR XR [Suspect]
     Indication: ANXIETY
     Route: 048
     Dates: start: 20080509, end: 20080801
  3. EFFEXOR XR [Suspect]
     Route: 048
     Dates: start: 20080801, end: 20080101
  4. EFFEXOR XR [Suspect]
     Route: 048
     Dates: start: 20080101
  5. LORAZEPAM [Suspect]
     Dosage: 1-2.5 MG AS REQUIRED
     Route: 048
     Dates: start: 20080801

REACTIONS (6)
  - DRUG EFFECT DECREASED [None]
  - DRUG WITHDRAWAL SYNDROME [None]
  - HEADACHE [None]
  - MIGRAINE [None]
  - SELF-MEDICATION [None]
  - TINNITUS [None]
